FAERS Safety Report 9593628 (Version 5)
Quarter: 2016Q1

REPORT INFORMATION
  Report Type: Report from Study
  Country: US (occurrence: US)
  Receive Date: 20131004
  Receipt Date: 20160125
  Transmission Date: 20160526
  Serious: Yes (Hospitalization, Other)
  Sender: FDA-Public Use
  Company Number: US-ALEXION-A201302290

PATIENT
  Age: 33 Year
  Sex: Female
  Weight: 73 kg

DRUGS (2)
  1. SOLIRIS [Suspect]
     Active Substance: ECULIZUMAB
     Dosage: 1200 MG, UNK
     Dates: start: 20131108, end: 20131220
  2. SOLIRIS [Suspect]
     Active Substance: ECULIZUMAB
     Indication: HAEMOLYTIC URAEMIC SYNDROME
     Dosage: 900 MG, UNK
     Route: 042
     Dates: start: 201308, end: 20130917

REACTIONS (22)
  - Blood pressure abnormal [Not Recovered/Not Resolved]
  - Cardiomyopathy [Unknown]
  - Pneumonia [Recovered/Resolved]
  - General physical health deterioration [Unknown]
  - Fluid retention [Unknown]
  - Renal failure [Unknown]
  - Hypertension [Not Recovered/Not Resolved]
  - Microangiopathic haemolytic anaemia [Unknown]
  - Cough [Recovering/Resolving]
  - Fatigue [Recovered/Resolved]
  - Hypokalaemia [Not Recovered/Not Resolved]
  - Migraine [Recovered/Resolved]
  - Infusion related reaction [Unknown]
  - Fluid retention [Not Recovered/Not Resolved]
  - Blood urea increased [Not Recovered/Not Resolved]
  - Headache [Recovered/Resolved]
  - Hypoxia [Unknown]
  - Sepsis [Recovered/Resolved]
  - Fungal infection [Recovered/Resolved]
  - Renal disorder [Unknown]
  - Blood creatinine increased [Not Recovered/Not Resolved]
  - Bacteraemia [Unknown]

NARRATIVE: CASE EVENT DATE: 2013
